FAERS Safety Report 8488803-8 (Version None)
Quarter: 2012Q3

REPORT INFORMATION
  Report Type: 
  Country: None (occurrence: None)
  Receive Date: 20120705
  Receipt Date: 20120625
  Transmission Date: 20120928
  Serious: Yes (Hospitalization)
  Sender: FDA-Public Use
  Company Number: JP-VERTEX PHARMACEUTICALS INC.-AE-2012-009548

PATIENT
  Age: 61 Year
  Sex: Female

DRUGS (8)
  1. TELAVIC (TELAPREVIR) [Suspect]
     Indication: HEPATITIS C
     Route: 048
     Dates: start: 20120510
  2. RIBAVIRIN [Concomitant]
     Indication: HEPATITIS C
     Route: 048
     Dates: start: 20120510, end: 20120520
  3. AMARYL [Concomitant]
  4. RIBAVIRIN [Concomitant]
     Route: 048
     Dates: start: 20120531
  5. RIBAVIRIN [Concomitant]
     Route: 048
     Dates: start: 20120521, end: 20120530
  6. REBAMIPIDE [Concomitant]
     Dates: start: 20120510
  7. PEGINTERFERON ALFA-2B [Concomitant]
     Indication: HEPATITIS C
     Route: 058
     Dates: start: 20120510
  8. LOXOPROFEN [Concomitant]
     Dates: start: 20120510

REACTIONS (1)
  - RASH [None]
